FAERS Safety Report 21192408 (Version 3)
Quarter: 2022Q4

REPORT INFORMATION
  Report Type: Spontaneous
  Country: US (occurrence: US)
  Receive Date: 20220809
  Receipt Date: 20221011
  Transmission Date: 20230112
  Serious: Yes (Hospitalization, Other)
  Sender: FDA-Public Use
  Company Number: US-GILEAD-2022-0592964

PATIENT
  Age: 61 Year
  Sex: Male

DRUGS (5)
  1. YESCARTA [Suspect]
     Active Substance: AXICABTAGENE CILOLEUCEL
     Indication: Diffuse large B-cell lymphoma
     Dosage: UNK
     Route: 042
     Dates: start: 20220713, end: 20220713
  2. KEPPRA [Concomitant]
     Active Substance: LEVETIRACETAM
     Indication: Seizure prophylaxis
     Dosage: 1000 MG
     Route: 048
     Dates: start: 20220802, end: 20220803
  3. ACYCLOVIR [Concomitant]
     Active Substance: ACYCLOVIR
  4. TENOFOVIR [Concomitant]
     Active Substance: TENOFOVIR
  5. SULFAMETHOXAZOLE\TRIMETHOPRIM [Concomitant]
     Active Substance: SULFAMETHOXAZOLE\TRIMETHOPRIM

REACTIONS (5)
  - Seizure [Recovered/Resolved]
  - Paraesthesia [Recovered/Resolved]
  - Staring [Recovered/Resolved]
  - Dyskinesia [Recovered/Resolved]
  - Bradyphrenia [Recovered/Resolved]

NARRATIVE: CASE EVENT DATE: 20220731
